FAERS Safety Report 9255167 (Version 2)
Quarter: 2013Q2

REPORT INFORMATION
  Report Type: Report from Study
  Country: US (occurrence: US)
  Receive Date: 20130425
  Receipt Date: 20130513
  Transmission Date: 20140414
  Serious: Yes (Death)
  Sender: FDA-Public Use
  Company Number: US-MYLANLABS-2013S1008168

PATIENT
  Age: 64 Year
  Sex: Female
  Weight: 83.01 kg

DRUGS (4)
  1. CLOZAPINE TABLETS [Suspect]
     Route: 048
     Dates: start: 20130325, end: 20130403
  2. CLOZAPINE TABLETS [Suspect]
     Route: 048
     Dates: start: 20130403, end: 201304
  3. LAMICTAL [Concomitant]
     Route: 048
     Dates: start: 20121219
  4. PRISTIQ [Concomitant]

REACTIONS (3)
  - Death [Fatal]
  - Disorientation [Unknown]
  - Sedation [Recovered/Resolved]
